FAERS Safety Report 19975145 (Version 1)
Quarter: 2021Q4

REPORT INFORMATION
  Report Type: Spontaneous
  Country: RU (occurrence: RU)
  Receive Date: 20211020
  Receipt Date: 20211020
  Transmission Date: 20220304
  Serious: Yes (Life-Threatening, Other)
  Sender: FDA-Public Use
  Company Number: RU-SEPTODONT-2021006567

PATIENT
  Age: 17 Year
  Sex: Male

DRUGS (2)
  1. SCANDONEST PLAIN [Suspect]
     Active Substance: MEPIVACAINE HYDROCHLORIDE
     Route: 004
     Dates: start: 20010302, end: 20010302
  2. PROCAINE [Concomitant]
     Active Substance: PROCAINE
     Route: 004
     Dates: start: 20010302, end: 20010302

REACTIONS (3)
  - Anaphylactic shock [Recovered/Resolved]
  - Loss of consciousness [Recovered/Resolved]
  - Nausea [Recovered/Resolved]

NARRATIVE: CASE EVENT DATE: 20010302
